FAERS Safety Report 15596993 (Version 2)
Quarter: 2021Q1

REPORT INFORMATION
  Report Type: Other
  Country: CA (occurrence: CA)
  Receive Date: 20181108
  Receipt Date: 20210120
  Transmission Date: 20210419
  Serious: No
  Sender: FDA-Public Use
  Company Number: CA-ROCHE-2211985

PATIENT
  Age: 34 Year
  Sex: Male

DRUGS (1)
  1. OCREVUS [Suspect]
     Active Substance: OCRELIZUMAB
     Indication: PRIMARY PROGRESSIVE MULTIPLE SCLEROSIS
     Dosage: 300 MG AT DAY 0 AND 14, THEN 600 MG EVERY 6 MONTH
     Route: 042
     Dates: start: 20180618

REACTIONS (3)
  - Cystitis [Recovered/Resolved]
  - Skin ulcer [Recovering/Resolving]
  - Hepatic enzyme increased [Unknown]

NARRATIVE: CASE EVENT DATE: 201810
